FAERS Safety Report 5109529-4 (Version None)
Quarter: 2006Q3

REPORT INFORMATION
  Report Type: 
  Country: None (occurrence: None)
  Receive Date: 20060731
  Receipt Date: 20060404
  Transmission Date: 20061208
  Serious: No
  Sender: FDA-Public Use
  Company Number: 2006PV011552

PATIENT
  Sex: Male

DRUGS (5)
  1. BYETTA [Suspect]
     Indication: DIABETES MELLITUS
     Dosage: 10 MCG; SC; SEE IMAGE
     Route: 058
     Dates: start: 20060301, end: 20060301
  2. BYETTA [Suspect]
     Indication: DIABETES MELLITUS
     Dosage: 10 MCG; SC; SEE IMAGE
     Route: 058
     Dates: start: 20060301
  3. LANTUS [Concomitant]
  4. NOVOLOG MIX 70/30 [Concomitant]
  5. NOVOLOG [Concomitant]

REACTIONS (9)
  - ANOREXIA [None]
  - BLOOD GLUCOSE INCREASED [None]
  - DRUG INEFFECTIVE [None]
  - DYSPEPSIA [None]
  - ERUCTATION [None]
  - MEDICATION ERROR [None]
  - NAUSEA [None]
  - VOMITING [None]
  - WEIGHT DECREASED [None]
